FAERS Safety Report 25917574 (Version 1)
Quarter: 2025Q4

REPORT INFORMATION
  Report Type: Report from Study
  Country: CA (occurrence: CA)
  Receive Date: 20251014
  Receipt Date: 20251014
  Transmission Date: 20260118
  Serious: Yes (Other)
  Sender: AMGEN
  Company Number: CA-AMGEN-CANSL2024245733

PATIENT
  Age: 74 Year
  Sex: Female

DRUGS (5)
  1. AVSOLA [Suspect]
     Active Substance: INFLIXIMAB-AXXQ
     Indication: Crohn^s disease
     Dosage: 700 MILLIGRAM, Q6WK
     Route: 065
     Dates: start: 20220209
  2. AVSOLA [Suspect]
     Active Substance: INFLIXIMAB-AXXQ
     Dosage: 700 MILLIGRAM, Q6WK
     Route: 065
  3. AVSOLA [Suspect]
     Active Substance: INFLIXIMAB-AXXQ
     Dosage: 700 MILLIGRAM, Q6WK
     Route: 065
  4. AVSOLA [Suspect]
     Active Substance: INFLIXIMAB-AXXQ
     Route: 065
  5. AVSOLA [Suspect]
     Active Substance: INFLIXIMAB-AXXQ
     Route: 065

REACTIONS (25)
  - Therapeutic response unexpected [Recovered/Resolved]
  - Skin cancer [Recovered/Resolved]
  - Oral herpes [Recovered/Resolved]
  - Off label use [Recovered/Resolved]
  - Body temperature abnormal [Recovered/Resolved]
  - Bone pain [Recovered/Resolved]
  - Vulval eczema [Recovered/Resolved]
  - Dermatitis [Recovered/Resolved]
  - Vulvovaginal mycotic infection [Recovered/Resolved]
  - Chills [Recovered/Resolved]
  - Abdominal pain [Recovered/Resolved]
  - Arthralgia [Recovered/Resolved]
  - Fungal infection [Recovered/Resolved]
  - Fatigue [Recovered/Resolved]
  - Nausea [Recovered/Resolved]
  - Pain [Recovered/Resolved]
  - Headache [Recovered/Resolved]
  - Dizziness [Unknown]
  - Asthenia [Recovered/Resolved]
  - Blood pressure increased [Unknown]
  - Dysuria [Unknown]
  - Muscle spasms [Unknown]
  - Pain in extremity [Unknown]
  - Otolithiasis [Unknown]
  - Palpitations [Unknown]

NARRATIVE: CASE EVENT DATE: 20250101
